FAERS Safety Report 22643704 (Version 1)
Quarter: 2023Q2

REPORT INFORMATION
  Report Type: Spontaneous
  Country: JP (occurrence: JP)
  Receive Date: 20230627
  Receipt Date: 20230627
  Transmission Date: 20230722
  Serious: Yes (Other)
  Sender: FDA-Public Use
  Company Number: JP-GILEAD-2023-0633816

PATIENT
  Age: 76 Year
  Sex: Female

DRUGS (3)
  1. AMBRISENTAN [Suspect]
     Active Substance: AMBRISENTAN
     Indication: Pulmonary hypertension
     Dosage: 5 MG, QD
     Route: 065
  2. SILDENAFIL [Concomitant]
     Active Substance: SILDENAFIL
     Dosage: 60 MG, QD
  3. BOSENTAN [Concomitant]
     Active Substance: BOSENTAN
     Dosage: 125 MG, QD

REACTIONS (2)
  - Respiratory distress [Unknown]
  - Peripheral swelling [Unknown]
